FAERS Safety Report 5910132-4 (Version None)
Quarter: 2008Q4

REPORT INFORMATION
  Report Type: 
  Country: None (occurrence: None)
  Receive Date: 20081007
  Receipt Date: 20081002
  Transmission Date: 20090506
  Serious: Yes (Other)
  Sender: FDA-Public Use
  Company Number: US-BAYER-US-2006-038925

PATIENT
  Age: 46 Year
  Sex: Female

DRUGS (5)
  1. CAMPATH [Suspect]
     Indication: IMMUNOSUPPRESSION
     Dosage: UNIT DOSE: 20 MG
     Route: 065
  2. CYCLOPHOSPHAMIDE [Suspect]
     Indication: HAEMATOPOIETIC STEM CELL MOBILISATION
     Dosage: AS USED: 200 MG/KG
     Route: 065
  3. CYCLOPHOSPHAMIDE [Suspect]
     Route: 065
  4. ANTIINFECTIVES [Concomitant]
     Indication: INFECTION PROPHYLAXIS
  5. NEUPOGEN [Concomitant]
     Indication: HAEMATOPOIETIC STEM CELL MOBILISATION
     Route: 065

REACTIONS (5)
  - ANAEMIA [None]
  - IDIOPATHIC THROMBOCYTOPENIC PURPURA [None]
  - LEUKOPENIA [None]
  - PETECHIAE [None]
  - PLATELET COUNT DECREASED [None]
